FAERS Safety Report 13718315 (Version 2)
Quarter: 2017Q3

REPORT INFORMATION
  Report Type: Spontaneous
  Country: US (occurrence: US)
  Receive Date: 20170705
  Receipt Date: 20170727
  Transmission Date: 20171127
  Serious: Yes (Death, Hospitalization)
  Sender: FDA-Public Use
  Company Number: US-PFIZER INC-2017281447

PATIENT
  Age: 22 Year
  Sex: Male

DRUGS (13)
  1. MYCELEX [Concomitant]
     Active Substance: CLOTRIMAZOLE
     Dosage: 10 MG, 3X/DAY
     Route: 048
  2. DURAGESIC [Concomitant]
     Active Substance: FENTANYL
     Dosage: (100 MCG/HR) (THE SKIN EVERY THIRD DAY)
     Route: 062
  3. LIDOCAINE AND PRILOCAINE [Concomitant]
     Active Substance: LIDOCAINE\PRILOCAINE
     Dosage: UNK UNK, AS NEEDED [LIDOCAINE: 2.5%/ PRILOCAINE: 2.5%]
  4. ATIVAN [Concomitant]
     Active Substance: LORAZEPAM
     Indication: ANXIETY
     Dosage: 1MG, AS NEEDED (TAKE 1-2 MG)(EVERY 4 (FOUR) HOURS)
     Route: 048
  5. COMPAZINE [Concomitant]
     Active Substance: PROCHLORPERAZINE MALEATE
     Dosage: 10 MG, AS NEEDED (EVERY 6(SIX) HOURS)
     Route: 048
  6. DILAUDID [Concomitant]
     Active Substance: HYDROMORPHONE HYDROCHLORIDE
     Indication: PAIN
     Dosage: 2 MG, AS NEEDED (1-4 TABLETS EVERY 2 HOURS)(PRN)
  7. VOLTAREN [Concomitant]
     Active Substance: DICLOFENAC SODIUM
     Dosage: 2 G, 4X/DAY
     Route: 061
  8. GLYCOLAX [Concomitant]
     Active Substance: POLYETHYLENE GLYCOL 3350
     Dosage: 17 G, AS NEEDED (2 (TWO) TIMES DAILY)(DISSOLVED POWER IN 240 ML WATER)
     Route: 048
  9. PEPCID [Concomitant]
     Active Substance: FAMOTIDINE
     Dosage: 20 MG, 2X/DAY (EVERY 12 (TWELVE) HOURS)
  10. XALKORI [Suspect]
     Active Substance: CRIZOTINIB
     Indication: METASTATIC MALIGNANT MELANOMA
     Dosage: 250 MG, 2X/DAY
     Route: 048
  11. DECADRON [Concomitant]
     Active Substance: DEXAMETHASONE
     Dosage: 4 MG, DAILY (WITH BREAKFAST)
     Route: 048
  12. SENOKOT [Concomitant]
     Active Substance: SENNOSIDES
     Dosage: 8.8 MG, 2X/DAY
     Route: 048
  13. TORISEL [Suspect]
     Active Substance: TEMSIROLIMUS
     Indication: METASTATIC MALIGNANT MELANOMA
     Dosage: 25 MG, WEEKLY

REACTIONS (2)
  - Product use in unapproved indication [Unknown]
  - Neoplasm progression [Fatal]
